FAERS Safety Report 26179146 (Version 1)
Quarter: 2025Q4

REPORT INFORMATION
  Report Type: Spontaneous
  Country: US (occurrence: US)
  Receive Date: 20251219
  Receipt Date: 20251219
  Transmission Date: 20260118
  Serious: No
  Sender: SUNOVION
  Company Number: US-SMPA-2025SPA016060

PATIENT
  Sex: Female

DRUGS (1)
  1. GEMTESA [Suspect]
     Active Substance: VIBEGRON
     Indication: Hypertonic bladder
     Dosage: UNKNOWN
     Route: 048

REACTIONS (3)
  - Blood creatinine increased [Unknown]
  - Vision blurred [Unknown]
  - Urinary incontinence [Unknown]
